FAERS Safety Report 4849941-1 (Version None)
Quarter: 2005Q4

REPORT INFORMATION
  Report Type: 
  Country: None (occurrence: None)
  Receive Date: 20051101
  Receipt Date: 20050301
  Transmission Date: 20060501
  Serious: Yes (Hospitalization)
  Sender: FDA-Public Use
  Company Number: 2005S1000902

PATIENT
  Age: 54 Year
  Sex: Male
  Weight: 90.7194 kg

DRUGS (2)
  1. CLOZAPINE [Suspect]
     Indication: SCHIZOPHRENIA
     Dosage: 100 MG;QAM;PO ; 200 MG;HS;PO
     Route: 048
     Dates: start: 20030101
  2. CLOZAPINE [Suspect]
     Indication: SCHIZOPHRENIA
     Dosage: 100 MG;QAM;PO ; 200 MG;HS;PO
     Route: 048
     Dates: start: 20030101

REACTIONS (2)
  - ACCIDENTAL OVERDOSE [None]
  - SYNCOPE [None]
